FAERS Safety Report 9697612 (Version 2)
Quarter: 2013Q4

REPORT INFORMATION
  Report Type: Spontaneous
  Country: US (occurrence: US)
  Receive Date: 20131120
  Receipt Date: 20131120
  Transmission Date: 20140711
  Serious: No
  Sender: FDA-Public Use
  Company Number: US-PFIZER INC-2013316872

PATIENT
  Age: 58 Year
  Sex: Male

DRUGS (8)
  1. ENBREL [Suspect]
     Indication: PSORIATIC ARTHROPATHY
     Dosage: 50 MG, WEEKLY
     Dates: start: 201308
  2. ENBREL [Suspect]
     Indication: PSORIASIS
  3. ADVIL [Suspect]
     Indication: GASTROENTERITIS
     Dosage: UNK
     Dates: start: 2013
  4. ALKA-SELTZER [Suspect]
     Indication: GASTROENTERITIS
     Dosage: UNK
     Dates: start: 2013
  5. GLIPIZIDE [Concomitant]
     Dosage: UNK
  6. XANAX [Concomitant]
     Dosage: 2 MG, 4X/DAY
  7. EDARBYCLOR [Concomitant]
     Dosage: 40 MG/25 MG, UNK
  8. TRAMADOL [Concomitant]
     Dosage: UNK

REACTIONS (3)
  - Drug screen positive [Unknown]
  - Dysgeusia [Unknown]
  - Gastroenteritis [Recovered/Resolved]
